FAERS Safety Report 8469358-0 (Version None)
Quarter: 2012Q2

REPORT INFORMATION
  Report Type: 
  Country: None (occurrence: None)
  Receive Date: 20120621
  Receipt Date: 20120621
  Transmission Date: 20120825
  Serious: Yes (Hospitalization, Other)
  Sender: FDA-Public Use
  Company Number: None

PATIENT
  Sex: Male
  Weight: 97.5234 kg

DRUGS (2)
  1. TRAMADOL HCL [Suspect]
     Indication: PAIN
     Dosage: 50 MG
     Dates: start: 20091101, end: 20101001
  2. GABAPENTIN [Suspect]
     Indication: PAIN
     Dosage: 800 MG TID ORAL
     Route: 048
     Dates: start: 20091101, end: 20101001

REACTIONS (5)
  - OESOPHAGEAL HAEMORRHAGE [None]
  - HAEMATEMESIS [None]
  - EROSIVE OESOPHAGITIS [None]
  - WRONG TECHNIQUE IN DRUG USAGE PROCESS [None]
  - HAEMORRHAGE [None]
